FAERS Safety Report 9607041 (Version 1)
Quarter: 2013Q4

REPORT INFORMATION
  Report Type: Report from Study
  Country: ES (occurrence: ES)
  Receive Date: 20131009
  Receipt Date: 20131009
  Transmission Date: 20140711
  Serious: Yes (Other)
  Sender: FDA-Public Use
  Company Number: ES-MERCK-1310ESP000714

PATIENT
  Age: 54 Year
  Sex: Male

DRUGS (3)
  1. PEGINTRON [Suspect]
     Indication: CHRONIC HEPATITIS C
     Dosage: 150 MCG, ONCE PER WEEK
     Route: 058
     Dates: start: 20120113, end: 201212
  2. VICTRELIS [Suspect]
     Indication: CHRONIC HEPATITIS C
     Dosage: 800 MG, 3 TIMES PER DAY
     Route: 048
     Dates: start: 20120218, end: 201212
  3. RIBAVIRIN [Suspect]
     Indication: CHRONIC HEPATITIS C
     Dosage: 600 MG, 2 TIMER PER DAY
     Route: 048
     Dates: start: 20120113, end: 201212

REACTIONS (9)
  - Saliva altered [Unknown]
  - Dyspepsia [Unknown]
  - Irritability [Unknown]
  - Injection site erythema [Unknown]
  - Anxiety [Unknown]
  - Insomnia [Unknown]
  - Oral candidiasis [Recovered/Resolved]
  - Cheilitis [Unknown]
  - Neutropenia [Recovered/Resolved]
